FAERS Safety Report 5948377-X (Version None)
Quarter: 2008Q4

REPORT INFORMATION
  Report Type: 
  Country: None (occurrence: None)
  Receive Date: 20081111
  Receipt Date: 20081103
  Transmission Date: 20090506
  Serious: Yes (Hospitalization)
  Sender: FDA-Public Use
  Company Number: US-AVENTIS-200817477US

PATIENT
  Sex: Female
  Weight: 22.68 kg

DRUGS (5)
  1. DDAVP [Suspect]
     Route: 048
     Dates: start: 20080101, end: 20080501
  2. DDAVP [Suspect]
     Route: 048
     Dates: start: 20080901, end: 20081101
  3. CONCERTA [Concomitant]
     Dates: start: 20030101
  4. MULTI-VITAMINS [Concomitant]
     Dosage: DOSE: UNK
     Route: 048
  5. EPIPEN                             /00003901/ [Concomitant]
     Dosage: DOSE: UNK
     Route: 051

REACTIONS (3)
  - CONVULSION [None]
  - HEADACHE [None]
  - VAGINAL HAEMORRHAGE [None]
